FAERS Safety Report 7773014-1 (Version None)
Quarter: 2011Q3

REPORT INFORMATION
  Report Type: 
  Country: None (occurrence: None)
  Receive Date: 20110922
  Receipt Date: 20101201
  Transmission Date: 20111222
  Serious: No
  Sender: FDA-Public Use
  Company Number: US-ASTRAZENECA-2010SE32664

PATIENT
  Age: 52 Year
  Sex: Female
  Weight: 48.5 kg

DRUGS (7)
  1. TEGRETOL [Concomitant]
     Route: 048
  2. HYTRIN [Concomitant]
     Route: 048
  3. SEROQUEL XR [Suspect]
     Indication: SLEEP DISORDER
     Route: 048
     Dates: start: 20090801, end: 20091101
  4. ESTRADIOL [Concomitant]
     Route: 048
  5. SEROQUEL XR [Suspect]
     Indication: BIPOLAR DISORDER
     Route: 048
     Dates: start: 20090801, end: 20091101
  6. SYNTHROID [Concomitant]
     Route: 048
  7. XANAX [Concomitant]
     Route: 048

REACTIONS (4)
  - MOANING [None]
  - PSYCHIATRIC SYMPTOM [None]
  - DRUG INEFFECTIVE [None]
  - DYSKINESIA [None]
